FAERS Safety Report 21008563 (Version 4)
Quarter: 2022Q3

REPORT INFORMATION
  Report Type: Spontaneous
  Country: US (occurrence: US)
  Receive Date: 20220627
  Receipt Date: 20220809
  Transmission Date: 20221027
  Serious: No
  Sender: FDA-Public Use
  Company Number: US-PFIZER INC-202200838843

PATIENT
  Age: 9 Year
  Sex: Female
  Weight: 16.78 kg

DRUGS (2)
  1. GENOTROPIN [Suspect]
     Active Substance: SOMATROPIN
     Indication: Growth disorder
     Dosage: 0.4, 1X/DAY (AT NIGHT AT ABOUT 08:00 PM)
     Dates: start: 202205, end: 2022
  2. GENOTROPIN [Suspect]
     Active Substance: SOMATROPIN
     Dosage: 0.5, 1X/DAY (AT NIGHT AT ABOUT 08:00 PM)
     Dates: start: 202206

REACTIONS (2)
  - Device breakage [Unknown]
  - Device issue [Unknown]

NARRATIVE: CASE EVENT DATE: 20220101
